FAERS Safety Report 16954044 (Version 1)
Quarter: 2019Q4

REPORT INFORMATION
  Report Type: Spontaneous
  Country: US (occurrence: US)
  Receive Date: 20191023
  Receipt Date: 20191023
  Transmission Date: 20200122
  Serious: No
  Sender: FDA-Public Use
  Company Number: US-ABBVIE-19K-163-2962680-00

PATIENT

DRUGS (1)
  1. ORILISSA [Suspect]
     Active Substance: ELAGOLIX SODIUM
     Indication: PRODUCT USED FOR UNKNOWN INDICATION
     Dosage: 200MG TWICE DAILY
     Route: 048
     Dates: end: 2019

REACTIONS (5)
  - Disturbance in attention [Unknown]
  - Unevaluable event [Unknown]
  - Memory impairment [Unknown]
  - Aphasia [Unknown]
  - Confusional state [Unknown]
